FAERS Safety Report 7688017-5 (Version None)
Quarter: 2011Q3

REPORT INFORMATION
  Report Type: 
  Country: None (occurrence: None)
  Receive Date: 20110817
  Receipt Date: 20110805
  Transmission Date: 20111222
  Serious: No
  Sender: FDA-Public Use
  Company Number: US-PFIZER INC-2011185693

PATIENT
  Sex: Female
  Weight: 48.526 kg

DRUGS (2)
  1. AMLODIPINE BESYLATE [Suspect]
     Indication: HYPERTENSION
     Dosage: 5 MG, DAILY
     Route: 048
     Dates: end: 20110717
  2. AMLODIPINE BESYLATE [Interacting]
     Dosage: 2.5 MG, 1X/DAY
     Route: 048
     Dates: start: 20110718

REACTIONS (1)
  - OEDEMA PERIPHERAL [None]
